FAERS Safety Report 5587607-3 (Version None)
Quarter: 2008Q1

REPORT INFORMATION
  Report Type: 
  Country: None (occurrence: None)
  Receive Date: 20080110
  Receipt Date: 20071231
  Transmission Date: 20080703
  Serious: Yes (Other)
  Sender: FDA-Public Use
  Company Number: FR-MERCK-0801FRA00025

PATIENT
  Sex: Female

DRUGS (1)
  1. PROPECIA [Suspect]
     Route: 065

REACTIONS (2)
  - ABORTION SPONTANEOUS [None]
  - TRANSMISSION OF DRUG VIA SEMEN [None]
